FAERS Safety Report 21579794 (Version 1)
Quarter: 2022Q4

REPORT INFORMATION
  Report Type: Spontaneous
  Country: CN (occurrence: None)
  Receive Date: 20221110
  Receipt Date: 20221110
  Transmission Date: 20230113
  Serious: Yes (Other)
  Sender: FDA-Public Use
  Company Number: CN-ROCHE-3213626

PATIENT
  Age: 45 Year
  Sex: Male

DRUGS (8)
  1. ALECENSA [Suspect]
     Active Substance: ALECTINIB HYDROCHLORIDE
     Indication: Cancer surgery
     Route: 048
     Dates: start: 20220117
  2. ALECENSA [Suspect]
     Active Substance: ALECTINIB HYDROCHLORIDE
     Indication: Metastases to lymph nodes
  3. ALECENSA [Suspect]
     Active Substance: ALECTINIB HYDROCHLORIDE
     Indication: Metastases to central nervous system
  4. BEVACIZUMAB [Concomitant]
     Active Substance: BEVACIZUMAB
     Dosage: 25-MAY-2022, 16-JUN-2022, 08-JUL-2022, 02-AUG-2022
  5. PEMETREXED DISODIUM [Concomitant]
     Active Substance: PEMETREXED DISODIUM
     Dosage: 25-MAY-2022, 16-JUN-2022, 08-JUL-2022, 02-AUG-2022
  6. CARBOPLATIN [Concomitant]
     Active Substance: CARBOPLATIN
     Dosage: 25-MAY-2022, 16-JUN-2022, 08-JUL-2022, 02-AUG-2022
  7. PACLITAXEL [Concomitant]
     Active Substance: PACLITAXEL
  8. CRIZOTINIB [Concomitant]
     Active Substance: CRIZOTINIB
     Dates: start: 20210322

REACTIONS (3)
  - Epilepsy [Recovering/Resolving]
  - Disease progression [Unknown]
  - Drug ineffective [Unknown]

NARRATIVE: CASE EVENT DATE: 20220426
